FAERS Safety Report 4446082-2 (Version None)
Quarter: 2004Q3

REPORT INFORMATION
  Report Type: 
  Country: None (occurrence: None)
  Receive Date: 20040903
  Receipt Date: 20040819
  Transmission Date: 20050211
  Serious: Yes (Life-Threatening, Hospitalization, Other)
  Sender: FDA-Public Use
  Company Number: 176478

PATIENT
  Age: 47 Year
  Sex: Female

DRUGS (1)
  1. AVONEX [Suspect]
     Indication: MULTIPLE SCLEROSIS
     Dosage: 30 MCG QW IM
     Route: 030
     Dates: start: 20001201

REACTIONS (6)
  - BACK DISORDER [None]
  - CARCINOMA [None]
  - FEELING ABNORMAL [None]
  - INTRACRANIAL ANEURYSM [None]
  - MENTAL DISORDER [None]
  - STRESS SYMPTOMS [None]
